FAERS Safety Report 9998881 (Version 4)
Quarter: 2020Q3

REPORT INFORMATION
  Report Type: Other
  Country: DE (occurrence: DE)
  Receive Date: 20140312
  Receipt Date: 20200817
  Transmission Date: 20201103
  Serious: Yes (Death, Hospitalization)
  Sender: FDA-Public Use
  Company Number: DE-ROCHE-1360073

PATIENT
  Age: 74 Year
  Sex: Female

DRUGS (14)
  1. MABTHERA [Suspect]
     Active Substance: RITUXIMAB
     Indication: RHEUMATOID ARTHRITIS
     Route: 042
     Dates: start: 201101
  2. SIMVASTATIN. [Concomitant]
     Active Substance: SIMVASTATIN
  3. TORASEMIDE [Concomitant]
     Active Substance: TORSEMIDE
  4. MARCUMAR [Concomitant]
     Active Substance: PHENPROCOUMON
  5. VOTUM (GERMANY) [Concomitant]
     Active Substance: OLMESARTAN MEDOXOMIL
  6. TOCILIZUMAB. [Suspect]
     Active Substance: TOCILIZUMAB
     Indication: RHEUMATOID ARTHRITIS
     Route: 065
     Dates: start: 201209
  7. L?THYROXIN [Concomitant]
     Active Substance: LEVOTHYROXINE SODIUM
  8. CALCIUM [Concomitant]
     Active Substance: CALCIUM
  9. METHOTREXATE. [Suspect]
     Active Substance: METHOTREXATE
     Route: 065
  10. PROSTAVASIN [Concomitant]
     Active Substance: ALPROSTADIL ALFADEX
     Indication: PERIPHERAL ARTERIAL OCCLUSIVE DISEASE
  11. OMEPRAZOL [Concomitant]
     Active Substance: OMEPRAZOLE
  12. PREDNISOLON [Concomitant]
     Active Substance: PREDNISOLONE
  13. METHOTREXATE. [Suspect]
     Active Substance: METHOTREXATE
     Indication: PRODUCT USED FOR UNKNOWN INDICATION
     Route: 065
  14. METOPROLOL. [Concomitant]
     Active Substance: METOPROLOL
     Route: 065

REACTIONS (6)
  - Angina pectoris [Recovered/Resolved]
  - Joint range of motion decreased [Not Recovered/Not Resolved]
  - Impaired healing [Unknown]
  - Death [Fatal]
  - Pain [Unknown]
  - Foot deformity [Not Recovered/Not Resolved]

NARRATIVE: CASE EVENT DATE: 20140116
